FAERS Safety Report 13989116 (Version 1)
Quarter: 2017Q3

REPORT INFORMATION
  Report Type: Spontaneous
  Country: US (occurrence: None)
  Receive Date: 20170919
  Receipt Date: 20170919
  Transmission Date: 20171128
  Serious: Yes (Other)
  Sender: FDA-Public Use
  Company Number: None

PATIENT
  Age: 60 Year
  Sex: Female

DRUGS (8)
  1. VITAMIN A [Concomitant]
     Active Substance: VITAMIN A
  2. MULTI VITAMIN [Concomitant]
     Active Substance: VITAMINS
  3. CALTRATE [Concomitant]
     Active Substance: CALCIUM CARBONATE
  4. ORPHINE [Concomitant]
  5. LETROZOLE  2.5 MG [Suspect]
     Active Substance: LETROZOLE
     Indication: NEOPLASM MALIGNANT
     Route: 048
  6. IBRANCE [Suspect]
     Active Substance: PALBOCICLIB
     Indication: BRAIN NEOPLASM MALIGNANT
     Route: 048
     Dates: start: 20170818
  7. AMBIEN [Concomitant]
     Active Substance: ZOLPIDEM TARTRATE
  8. DEXAMETHASON [Concomitant]
     Active Substance: DEXAMETHASONE

REACTIONS (2)
  - Haemorrhage [None]
  - Fatigue [None]

NARRATIVE: CASE EVENT DATE: 2017
